FAERS Safety Report 16686427 (Version 2)
Quarter: 2020Q2

REPORT INFORMATION
  Report Type: Spontaneous
  Country: MY (occurrence: MY)
  Receive Date: 20190809
  Receipt Date: 20200518
  Transmission Date: 20200713
  Serious: Yes (Death)
  Sender: FDA-Public Use
  Company Number: MY-B.I. PHARMACEUTICALS,INC./RIDGEFIELD-2019-BI-032542

PATIENT
  Age: 60 Year
  Sex: Female

DRUGS (1)
  1. PRAXBIND [Suspect]
     Active Substance: IDARUCIZUMAB
     Indication: PROCOAGULANT THERAPY
     Route: 065
     Dates: start: 20190803

REACTIONS (4)
  - Multiple organ dysfunction syndrome [Fatal]
  - Acidosis [Fatal]
  - Haemorrhage [Fatal]
  - Infection [Fatal]
